FAERS Safety Report 24670858 (Version 2)
Quarter: 2025Q2

REPORT INFORMATION
  Report Type: Spontaneous
  Country: CN (occurrence: CN)
  Receive Date: 20241127
  Receipt Date: 20250608
  Transmission Date: 20250716
  Serious: Yes (Life-Threatening)
  Sender: COHERUS
  Company Number: CN-SHANGHAI JUNSHI BIOSCIENCES CO., LTD.-CN2024012152

PATIENT

DRUGS (4)
  1. TORIPALIMAB [Suspect]
     Active Substance: TORIPALIMAB
     Indication: Ureteric cancer
     Route: 041
     Dates: start: 20241017
  2. SODIUM CHLORIDE [Concomitant]
     Active Substance: SODIUM CHLORIDE
     Indication: Medication dilution
     Dates: start: 20241017
  3. GEMCITABINE [Concomitant]
     Active Substance: GEMCITABINE
     Indication: Ureteric cancer
     Dosage: 1.6 G (D1, D5), EVERY 3 WEEKS AS A CYCLE
     Dates: start: 20241014
  4. CISPLATIN [Concomitant]
     Active Substance: CISPLATIN
     Indication: Ureteric cancer
     Dosage: 40 MG (D1-D3), EVERY 3 WEEKS AS A CYCLE
     Dates: start: 20241014

REACTIONS (1)
  - Stomatitis [Recovering/Resolving]

NARRATIVE: CASE EVENT DATE: 20241106
